FAERS Safety Report 15960365 (Version 1)
Quarter: 2019Q1

REPORT INFORMATION
  Report Type: Spontaneous
  Country: US (occurrence: US)
  Receive Date: 20190213
  Receipt Date: 20190213
  Transmission Date: 20190417
  Serious: No
  Sender: FDA-Public Use
  Company Number: None

PATIENT
  Age: 63 Year
  Sex: Male
  Weight: 119.25 kg

DRUGS (1)
  1. TADALAFIL. [Suspect]
     Active Substance: TADALAFIL
     Indication: ERECTILE DYSFUNCTION
     Route: 048
     Dates: start: 20181114, end: 20190213

REACTIONS (1)
  - Musculoskeletal stiffness [None]

NARRATIVE: CASE EVENT DATE: 20190213
